FAERS Safety Report 20440061 (Version 1)
Quarter: 2022Q1

REPORT INFORMATION
  Report Type: Spontaneous
  Country: US (occurrence: None)
  Receive Date: 20220205
  Receipt Date: 20220205
  Transmission Date: 20220424
  Serious: No
  Sender: FDA-Public Use
  Company Number: None

PATIENT
  Age: 70 Year
  Sex: Male
  Weight: 60.75 kg

DRUGS (11)
  1. IBRANCE [Suspect]
     Active Substance: PALBOCICLIB
     Indication: Bone cancer
     Dosage: OTHER FREQUENCY : QDX21 DAYS, 7 OFF;?
     Dates: start: 20190712
  2. GABAPENTIN [Concomitant]
     Active Substance: GABAPENTIN
  3. CELEBREX 400MG [Concomitant]
  4. AUGMENTIN [Concomitant]
     Active Substance: AMOXICILLIN\CLAVULANATE POTASSIUM
  5. TYLENOL PM 500-25MG [Concomitant]
  6. ASPIRIN [Concomitant]
     Active Substance: ASPIRIN
  7. LOSARTAN [Concomitant]
     Active Substance: LOSARTAN
  8. ATORVASTATIN [Concomitant]
     Active Substance: ATORVASTATIN
  9. CITALOPRAM [Concomitant]
     Active Substance: CITALOPRAM HYDROBROMIDE
  10. VITAMIN D2 2000UNIT [Concomitant]
  11. TRAMADOL [Concomitant]
     Active Substance: TRAMADOL

REACTIONS (1)
  - Hernia repair [None]

NARRATIVE: CASE EVENT DATE: 20220205
